FAERS Safety Report 9405243 (Version 1)
Quarter: 2013Q3

REPORT INFORMATION
  Report Type: Spontaneous
  Country: GB (occurrence: GB)
  Receive Date: 20130717
  Receipt Date: 20130717
  Transmission Date: 20140515
  Serious: Yes (Other)
  Sender: FDA-Public Use
  Company Number: GB-TEVA-417814ISR

PATIENT
  Age: 5 Year
  Sex: Male

DRUGS (2)
  1. TEVA UK RISPERIDONE [Suspect]
     Indication: AUTISM
     Dosage: HALF A 500 MICROGRAM TABLET DAILY
     Route: 048
     Dates: start: 20130607, end: 20130613
  2. MELATONIN [Concomitant]

REACTIONS (4)
  - Attention deficit/hyperactivity disorder [Recovered/Resolved]
  - Condition aggravated [Recovered/Resolved]
  - Product substitution issue [Unknown]
  - Reaction to colouring [Unknown]
